FAERS Safety Report 5330341-5 (Version None)
Quarter: 2007Q2

REPORT INFORMATION
  Report Type: 
  Country: None (occurrence: None)
  Receive Date: 20070521
  Receipt Date: 20070510
  Transmission Date: 20071010
  Serious: Yes (Other)
  Sender: FDA-Public Use
  Company Number: DE-PFIZER INC-2006082899

PATIENT
  Sex: Female

DRUGS (4)
  1. INSPRA [Suspect]
     Indication: CARDIAC FAILURE
     Dosage: DAILY DOSE:50MG-FREQ:DAILY
     Route: 048
     Dates: start: 20040901, end: 20060616
  2. INSPRA [Suspect]
     Indication: CARDIAC ARREST
  3. BETA BLOCKING AGENTS [Concomitant]
     Dosage: TEXT:UNKNOWN-FREQ:UNKNOWN
     Route: 065
  4. ACE INHIBITOR NOS [Concomitant]
     Dosage: TEXT:UNKNOWN-FREQ:UNKNOWN
     Route: 065

REACTIONS (3)
  - AUTOIMMUNE THYROIDITIS [None]
  - HYPOTHYROIDISM [None]
  - OLIGOMENORRHOEA [None]
